FAERS Safety Report 23651405 (Version 1)
Quarter: 2024Q1

REPORT INFORMATION
  Report Type: Report from Study
  Country: BR (occurrence: BR)
  Receive Date: 20240320
  Receipt Date: 20240320
  Transmission Date: 20240410
  Serious: Yes (Hospitalization)
  Sender: FDA-Public Use
  Company Number: BR-JNJFOC-20230925285

PATIENT
  Age: 14 Year
  Sex: Male
  Weight: 39 kg

DRUGS (3)
  1. REMICADE [Suspect]
     Active Substance: INFLIXIMAB
     Indication: Colitis ulcerative
     Dosage: DOSAGE REPORTED AS 3 VIALS
     Route: 041
     Dates: start: 20210620
  2. REMICADE [Suspect]
     Active Substance: INFLIXIMAB
     Dosage: DOSAGE REPORTED AS 3 VIALS
     Route: 041
  3. REMICADE [Suspect]
     Active Substance: INFLIXIMAB
     Route: 041
     Dates: start: 20200715

REACTIONS (2)
  - Colitis ulcerative [Recovered/Resolved]
  - Off label use [Unknown]
